FAERS Safety Report 5799297-5 (Version None)
Quarter: 2008Q3

REPORT INFORMATION
  Report Type: 
  Country: None (occurrence: None)
  Receive Date: 20080701
  Receipt Date: 20080617
  Transmission Date: 20090109
  Serious: Yes (Other)
  Sender: FDA-Public Use
  Company Number: DSU-2008-00898

PATIENT
  Age: 60 Year
  Sex: Female
  Weight: 77.1115 kg

DRUGS (4)
  1. BENICAR [Suspect]
     Indication: HYPERTENSION
     Dosage: PER ORAL
     Route: 048
     Dates: start: 20080101, end: 20080101
  2. PREDNISONE TAB [Concomitant]
  3. CYCLOPHOSPHAMIDE [Concomitant]
  4. SULFAMETHOXAZOLE [Concomitant]

REACTIONS (6)
  - ABDOMINAL PAIN UPPER [None]
  - ALCOHOL USE [None]
  - ASTHENIA [None]
  - HEPATIC FUNCTION ABNORMAL [None]
  - LIVER DISORDER [None]
  - NAUSEA [None]
